FAERS Safety Report 18220629 (Version 1)
Quarter: 2020Q3

REPORT INFORMATION
  Report Type: Spontaneous
  Country: DE (occurrence: DE)
  Receive Date: 20200902
  Receipt Date: 20200902
  Transmission Date: 20201103
  Serious: Yes (Hospitalization, Other)
  Sender: FDA-Public Use
  Company Number: DE-BAUSCH-BL-2020-025033

PATIENT
  Age: 67 Year
  Sex: Male

DRUGS (3)
  1. IXAZOMIB [Suspect]
     Active Substance: IXAZOMIB
     Indication: PLASMA CELL MYELOMA
     Route: 048
     Dates: start: 201912
  2. DEXAMETHASONE. [Suspect]
     Active Substance: DEXAMETHASONE
     Indication: PLASMA CELL MYELOMA
     Route: 065
     Dates: start: 201912
  3. REVLIMID [Suspect]
     Active Substance: LENALIDOMIDE
     Indication: PLASMA CELL MYELOMA
     Route: 065
     Dates: start: 201912

REACTIONS (9)
  - Thrombocytopenia [Recovering/Resolving]
  - Clostridium difficile infection [Unknown]
  - Acute kidney injury [Recovering/Resolving]
  - General physical health deterioration [Recovering/Resolving]
  - Infection susceptibility increased [Unknown]
  - Pyrexia [Unknown]
  - Enterococcal infection [Unknown]
  - Urosepsis [Recovering/Resolving]
  - Rash [Unknown]
